FAERS Safety Report 6550540-4 (Version None)
Quarter: 2010Q1

REPORT INFORMATION
  Report Type: 
  Country: None (occurrence: None)
  Receive Date: 20100125
  Receipt Date: 20100120
  Transmission Date: 20100710
  Serious: Yes (Hospitalization)
  Sender: FDA-Public Use
  Company Number: B0628801A

PATIENT
  Age: 62 Year
  Sex: Female
  Weight: 97.6 kg

DRUGS (19)
  1. QUILONORM [Suspect]
     Indication: DRUG USE FOR UNKNOWN INDICATION
     Dosage: 450MG PER DAY
     Route: 065
     Dates: start: 20090922
  2. WELLBUTRIN SR [Suspect]
     Indication: DRUG USE FOR UNKNOWN INDICATION
     Dosage: 300MG PER DAY
     Route: 065
  3. LAMOTRIGINE [Suspect]
     Indication: DRUG USE FOR UNKNOWN INDICATION
     Dosage: 200MG PER DAY
     Route: 065
  4. CYMBALTA [Suspect]
     Indication: DRUG USE FOR UNKNOWN INDICATION
     Dosage: 60MG PER DAY
     Dates: start: 20090915
  5. DELPRAL [Suspect]
     Indication: DRUG USE FOR UNKNOWN INDICATION
     Dosage: 400MG PER DAY
     Route: 065
  6. RIVOTRIL [Suspect]
     Indication: DRUG USE FOR UNKNOWN INDICATION
     Dosage: .25MG PER DAY
     Route: 065
     Dates: start: 20090929, end: 20090929
  7. SEROQUEL [Concomitant]
     Dosage: 300MG PER DAY
     Dates: end: 20090927
  8. ABILIFY [Concomitant]
     Dosage: 15MG PER DAY
     Dates: end: 20090928
  9. LYRICA [Concomitant]
     Dosage: 150MG PER DAY
     Dates: start: 20090925, end: 20090928
  10. NEUROBION [Concomitant]
     Dates: end: 20090927
  11. DIAMICRON [Concomitant]
     Dosage: 1TAB PER DAY
     Dates: end: 20090928
  12. GLUCOPHAGE [Concomitant]
     Dosage: 2G PER DAY
     Dates: end: 20090927
  13. ISOFLAVONE [Concomitant]
     Dosage: 90MG PER DAY
  14. NEXIUM [Concomitant]
     Dosage: 40MG PER DAY
     Dates: start: 20090911, end: 20090928
  15. DEFLAMAT [Concomitant]
     Dosage: 75MG PER DAY
     Dates: start: 20090910, end: 20090925
  16. MEXALEN [Concomitant]
     Dates: start: 20090922, end: 20090924
  17. NOVALGIN [Concomitant]
     Dates: start: 20090923, end: 20090924
  18. METOCLOPRAMIDE HYDROCHLORIDE [Concomitant]
     Dates: start: 20090925, end: 20090927
  19. PANTOPRAZOLE [Concomitant]
     Dosage: 40MG PER DAY
     Route: 042
     Dates: start: 20090930

REACTIONS (18)
  - ABDOMINAL PAIN UPPER [None]
  - ALANINE AMINOTRANSFERASE INCREASED [None]
  - ASPARTATE AMINOTRANSFERASE INCREASED [None]
  - BACK PAIN [None]
  - BLOOD CREATINE PHOSPHOKINASE INCREASED [None]
  - BLOOD CREATININE INCREASED [None]
  - BLOOD GLUCOSE FLUCTUATION [None]
  - BLOOD TRIGLYCERIDES INCREASED [None]
  - C-REACTIVE PROTEIN INCREASED [None]
  - DYSPNOEA [None]
  - GASTROINTESTINAL SOUNDS ABNORMAL [None]
  - ILEUS [None]
  - NAUSEA [None]
  - NEUTROPHIL COUNT INCREASED [None]
  - PNEUMONIA PRIMARY ATYPICAL [None]
  - PYREXIA [None]
  - VOMITING [None]
  - WHITE BLOOD CELL COUNT INCREASED [None]
